FAERS Safety Report 7189387-7 (Version None)
Quarter: 2010Q4

REPORT INFORMATION
  Report Type: 
  Country: None (occurrence: None)
  Receive Date: 20101222
  Receipt Date: 20100909
  Transmission Date: 20110411
  Serious: No
  Sender: FDA-Public Use
  Company Number: US-AMGEN-TCS424321

PATIENT

DRUGS (24)
  1. ENBREL [Suspect]
     Indication: RHEUMATOID ARTHRITIS
     Dosage: 50 MG, QWK
     Route: 058
     Dates: start: 20050101, end: 20100701
  2. METHOTREXATE [Concomitant]
     Dosage: 2.5 MG, QWK
  3. HYDROXYCHLOROQUINE SULFATE [Concomitant]
     Dosage: 200 MG, QD
  4. GABAPENTIN [Concomitant]
     Dosage: 300 MG, UNK
  5. CARBIDOPA AND LEVODOPA [Concomitant]
     Dosage: UNK UNK, BID
  6. BISOPROLOL FUMARATE [Concomitant]
     Dosage: UNK UNK, QD
  7. METFORMIN [Concomitant]
     Dosage: 500 MG, 2 TIMES/WK
  8. ESCITALOPRAM OXALATE [Concomitant]
     Dosage: 20 MG, QD
  9. MONTELUKAST [Concomitant]
     Dosage: 10 MG, QD
  10. LEVOTHYROXINE SODIUM [Concomitant]
     Dosage: 50 A?G, QD
  11. BUPROPION [Concomitant]
     Dosage: UNK UNK, QD
  12. ZOLPIDEM TARTRATE [Concomitant]
     Dosage: 12.5 MG, QD
  13. MORPHINE [Concomitant]
     Dosage: 30 MG, PRN
  14. HYDROCODONE BITARTRATE [Concomitant]
     Dosage: UNK UNK, PRN
  15. RIZATRIPTAN BENZOATE [Concomitant]
     Dosage: UNK UNK, PRN
  16. FOLIC ACID [Concomitant]
     Dosage: 1 MG, QD
  17. ESOMEPRAZOLE MAGNESIUM [Concomitant]
     Dosage: 40 MG, QD
  18. FEXOFENADINE HCL [Concomitant]
     Dosage: 180 MG, QD
  19. ALPRAZOLAM [Concomitant]
     Dosage: 1 MG, QD
  20. CALCIUM WITH VITAMIN D [Concomitant]
     Dosage: 600 MG, BID
  21. FLUTICASONE/SALMETEROL [Concomitant]
     Dosage: UNK UNK, BID
  22. PYRIDOXINE HYDROCHLORIDE [Concomitant]
     Dosage: UNK UNK, QD
  23. ALBUTEROL INHALER [Concomitant]
     Dosage: UNK UNK, PRN
  24. PRAMIPEXOLE [Concomitant]
     Dosage: 1 MG, QD

REACTIONS (1)
  - TUBERCULIN TEST POSITIVE [None]
